FAERS Safety Report 22350346 (Version 1)
Quarter: 2023Q2

REPORT INFORMATION
  Report Type: Spontaneous
  Country: KR (occurrence: KR)
  Receive Date: 20230522
  Receipt Date: 20230522
  Transmission Date: 20230722
  Serious: Yes (Other)
  Sender: FDA-Public Use
  Company Number: KR-MYLANLABS-2023M1051918

PATIENT
  Age: 24 Year
  Sex: Female

DRUGS (3)
  1. CELEBREX [Suspect]
     Active Substance: CELECOXIB
     Indication: Prophylaxis
     Dosage: 200 MILLIGRAM, QD
     Route: 048
     Dates: start: 20150116, end: 20150116
  2. ACETAMINOPHEN [Suspect]
     Active Substance: ACETAMINOPHEN
     Indication: Prophylaxis
     Dosage: 650 MILLIGRAM, QD
     Route: 048
     Dates: start: 20150116, end: 20150116
  3. MELOXICAM [Suspect]
     Active Substance: MELOXICAM
     Indication: Prophylaxis
     Dosage: 7.5 MILLIGRAM, QD
     Route: 048
     Dates: start: 20150116, end: 20150116

REACTIONS (3)
  - Depressed level of consciousness [Recovered/Resolved]
  - Oedema [Recovered/Resolved]
  - Off label use [Unknown]

NARRATIVE: CASE EVENT DATE: 20150116
